FAERS Safety Report 10167871 (Version 1)
Quarter: 2014Q2

REPORT INFORMATION
  Report Type: Spontaneous
  Country: FR (occurrence: FR)
  Receive Date: 20140512
  Receipt Date: 20140512
  Transmission Date: 20141212
  Serious: Yes (Hospitalization)
  Sender: FDA-Public Use
  Company Number: FR-TEVA-479564ISR

PATIENT
  Age: 51 Year
  Sex: Female

DRUGS (4)
  1. PACLITAXEL TEVA [Suspect]
     Indication: METASTATIC UTERINE CANCER
     Route: 042
     Dates: start: 20110110, end: 20110110
  2. DEXAMETHASONE [Concomitant]
     Route: 042
     Dates: start: 20110110, end: 20110110
  3. POLARAMINE [Concomitant]
     Route: 042
     Dates: start: 20110110, end: 20110110
  4. AZANTAC [Concomitant]
     Route: 042
     Dates: start: 20110110, end: 20110110

REACTIONS (5)
  - Malaise [Recovered/Resolved]
  - Chest discomfort [Recovered/Resolved]
  - Back pain [Recovered/Resolved]
  - Palpitations [Recovered/Resolved]
  - Feeling hot [Recovered/Resolved]
